FAERS Safety Report 6265778-3 (Version None)
Quarter: 2009Q3

REPORT INFORMATION
  Report Type: 
  Country: None (occurrence: None)
  Receive Date: 20090713
  Receipt Date: 20090701
  Transmission Date: 20100115
  Serious: Yes (Other)
  Sender: FDA-Public Use
  Company Number: B0583101A

PATIENT
  Age: 21 Year
  Sex: Female

DRUGS (3)
  1. NICABATE MINI LOZENGES [Suspect]
     Indication: DRUG WITHDRAWAL MAINTENANCE THERAPY
     Dosage: 2LOZ PER DAY
     Route: 002
     Dates: start: 20090630, end: 20090630
  2. TEGRETOL [Concomitant]
     Route: 065
  3. CIPRAMIL [Concomitant]
     Route: 065

REACTIONS (1)
  - CARDIAC ARREST [None]
